FAERS Safety Report 7292647-2 (Version None)
Quarter: 2011Q1

REPORT INFORMATION
  Report Type: 
  Country: None (occurrence: None)
  Receive Date: 20110214
  Receipt Date: 20110214
  Transmission Date: 20110831
  Serious: Yes (Life-Threatening, Other)
  Sender: FDA-Public Use
  Company Number: None

PATIENT
  Age: 45 Year
  Sex: Male
  Weight: 83.9154 kg

DRUGS (2)
  1. TRIAD ALCOHOL SWABS [Suspect]
     Indication: THERAPEUTIC SKIN CARE TOPICAL
     Dosage: USED PRIOR TO INJECTION OF BET EVERY OTHER DAY SQ
     Route: 058
     Dates: start: 20100801, end: 20101201
  2. BETASERON [Suspect]

REACTIONS (5)
  - PAIN [None]
  - SOFT TISSUE INFLAMMATION [None]
  - SKIN INDURATION [None]
  - INJECTION SITE INFECTION [None]
  - PRODUCT CONTAMINATION [None]
